FAERS Safety Report 5416059-9 (Version None)
Quarter: 2007Q3

REPORT INFORMATION
  Report Type: 
  Country: None (occurrence: None)
  Receive Date: 20070815
  Receipt Date: 20070806
  Transmission Date: 20080115
  Serious: Yes (Hospitalization, Other)
  Sender: FDA-Public Use
  Company Number: US-MERCK-0708USA01215

PATIENT
  Age: 79 Year
  Sex: Male

DRUGS (2)
  1. FOSAMAX [Suspect]
     Indication: OSTEITIS DEFORMANS
     Route: 048
     Dates: start: 20040101, end: 20040101
  2. MAVIK [Concomitant]
     Route: 065

REACTIONS (8)
  - BALANCE DISORDER [None]
  - DEAFNESS [None]
  - FALL [None]
  - INAPPROPRIATE SCHEDULE OF DRUG ADMINISTRATION [None]
  - OVERDOSE [None]
  - SENSATION OF HEAVINESS [None]
  - TINNITUS [None]
  - VERTIGO [None]
